FAERS Safety Report 13123116 (Version 2)
Quarter: 2017Q1

REPORT INFORMATION
  Report Type: Spontaneous
  Country: US (occurrence: US)
  Receive Date: 20170117
  Receipt Date: 20170307
  Transmission Date: 20170428
  Serious: Yes (Other)
  Sender: FDA-Public Use
  Company Number: US-ALLERGAN-1701563US

PATIENT
  Age: 70 Year
  Sex: Male

DRUGS (1)
  1. LUMIGAN [Suspect]
     Active Substance: BIMATOPROST
     Indication: PREOPERATIVE CARE
     Dosage: QQ
     Route: 047
     Dates: start: 201611

REACTIONS (4)
  - Eye disorder [Recovering/Resolving]
  - Cataract [Recovering/Resolving]
  - Eye pain [Not Recovered/Not Resolved]
  - Off label use [Unknown]

NARRATIVE: CASE EVENT DATE: 20161128
